FAERS Safety Report 6558552-1 (Version None)
Quarter: 2010Q1

REPORT INFORMATION
  Report Type: 
  Country: None (occurrence: None)
  Receive Date: 20100128
  Receipt Date: 20100128
  Transmission Date: 20100710
  Serious: Yes (Hospitalization)
  Sender: FDA-Public Use
  Company Number: None

PATIENT
  Sex: Female
  Weight: 150 kg

DRUGS (16)
  1. NAPROXEN [Suspect]
     Indication: PAIN
     Dosage: 500 MG BID PO
     Route: 048
  2. ASPIRIN [Suspect]
     Indication: CORONARY ARTERY DISEASE
     Dosage: 81 MG DAILY PO
     Route: 048
  3. ASPIRIN [Suspect]
     Indication: DIABETES MELLITUS
     Dosage: 81 MG DAILY PO
     Route: 048
  4. PRAVASTATIN [Concomitant]
  5. LISINOPRIL [Concomitant]
  6. GLIMEPIRIDE [Concomitant]
  7. PIOGLITAZONE [Concomitant]
  8. METFORMIN HCL [Concomitant]
  9. HYDROCHLOROTHIAZIDE/TRIMATERENE [Concomitant]
  10. NOVASC [Concomitant]
  11. CHLORPHENIRAMINE [Concomitant]
  12. JANUVIA [Concomitant]
  13. ZETIA [Concomitant]
  14. METOPROLOL TARTRATE [Concomitant]
  15. NAPROSYN [Concomitant]
  16. ALLOPURINOL [Concomitant]

REACTIONS (7)
  - DUODENAL ULCER [None]
  - GASTRIC ULCER [None]
  - HAEMOGLOBIN DECREASED [None]
  - HELICOBACTER INFECTION [None]
  - HIATUS HERNIA [None]
  - OESOPHAGITIS [None]
  - RENAL FAILURE ACUTE [None]
